FAERS Safety Report 17535565 (Version 2)
Quarter: 2020Q1

REPORT INFORMATION
  Report Type: Report from Study
  Country: US (occurrence: US)
  Receive Date: 20200312
  Receipt Date: 20200330
  Transmission Date: 20200409
  Serious: No
  Sender: FDA-Public Use
  Company Number: NVSC2020US071430

PATIENT
  Age: 29 Year
  Sex: Male

DRUGS (3)
  1. GILENYA [Suspect]
     Active Substance: FINGOLIMOD HYDROCHLORIDE
     Indication: MULTIPLE SCLEROSIS
     Dosage: 0.5 MG, QD
     Route: 048
     Dates: start: 2013
  2. GILENYA [Suspect]
     Active Substance: FINGOLIMOD HYDROCHLORIDE
     Dosage: 0.5 MG, QD
     Route: 048
     Dates: start: 20200312
  3. GILENYA [Suspect]
     Active Substance: FINGOLIMOD HYDROCHLORIDE
     Dosage: 0.5 MG, QD
     Route: 048
     Dates: start: 2016

REACTIONS (7)
  - Hypoaesthesia [Unknown]
  - Musculoskeletal pain [Recovering/Resolving]
  - Nerve compression [Not Recovered/Not Resolved]
  - Constipation [Unknown]
  - Pain [Recovered/Resolved]
  - Decreased interest [Unknown]
  - Product dose omission [Unknown]

NARRATIVE: CASE EVENT DATE: 20200315
